FAERS Safety Report 19074825 (Version 1)
Quarter: 2021Q1

REPORT INFORMATION
  Report Type: Spontaneous
  Country: US (occurrence: US)
  Receive Date: 20210330
  Receipt Date: 20210330
  Transmission Date: 20210420
  Serious: No
  Sender: FDA-Public Use
  Company Number: US-BAUSCH-BL-2021-007896

PATIENT
  Age: 11 Year
  Sex: Male

DRUGS (3)
  1. APRISO [Suspect]
     Active Substance: MESALAMINE
     Indication: COLITIS ULCERATIVE
     Route: 048
  2. BALSALAZIDE DISODIUM. [Suspect]
     Active Substance: BALSALAZIDE DISODIUM
     Indication: COLITIS ULCERATIVE
     Route: 065
  3. APRISO [Suspect]
     Active Substance: MESALAMINE
     Dosage: RESTARTED
     Route: 048
     Dates: start: 202101

REACTIONS (4)
  - Product substitution issue [Unknown]
  - Insurance issue [Unknown]
  - Inability to afford medication [Unknown]
  - Adverse drug reaction [Unknown]
